FAERS Safety Report 7409079-6 (Version None)
Quarter: 2011Q1

REPORT INFORMATION
  Report Type: 
  Country: None (occurrence: None)
  Receive Date: 20110301
  Receipt Date: 20101027
  Transmission Date: 20110831
  Serious: Yes (Hospitalization, Other)
  Sender: FDA-Public Use
  Company Number: RB-17387-2010

PATIENT
  Sex: Male

DRUGS (2)
  1. SUBUTEX [Suspect]
     Indication: DRUG DEPENDENCE
     Dosage: (20 MG QD TRANSPLACENTAL)
     Route: 064
     Dates: start: 20090101, end: 20100201
  2. SUBOXONE [Suspect]
     Indication: DRUG DEPENDENCE
     Dosage: (20 MG QD TRANSPLACENTAL)
     Route: 064
     Dates: start: 20090501, end: 20090101

REACTIONS (1)
  - DRUG WITHDRAWAL SYNDROME NEONATAL [None]
